FAERS Safety Report 9934293 (Version 2)
Quarter: 2014Q1

REPORT INFORMATION
  Report Type: Spontaneous
  Country: US (occurrence: US)
  Receive Date: 20140228
  Receipt Date: 20140228
  Transmission Date: 20141002
  Serious: No
  Sender: FDA-Public Use
  Company Number: US-ASTRAZENECA-2003UW14786

PATIENT
  Age: 60 Year
  Sex: Female
  Weight: 52.2 kg

DRUGS (9)
  1. TENORMIN [Suspect]
     Indication: HEART RATE INCREASED
     Route: 065
  2. TENORMIN [Suspect]
     Indication: ARRHYTHMIA
     Route: 065
  3. TOPROL XL [Suspect]
     Indication: TACHYCARDIA
     Route: 048
     Dates: start: 200311
  4. PRILOSEC [Suspect]
     Indication: GASTROOESOPHAGEAL REFLUX DISEASE
     Route: 048
     Dates: start: 19931208, end: 19931210
  5. HYOSCYMINE [Concomitant]
     Indication: ABDOMINAL PAIN
  6. DIPHENOXYLATE ATROPINE [Concomitant]
     Indication: DIARRHOEA
  7. PAROXETINE [Concomitant]
     Indication: POST-TRAUMATIC STRESS DISORDER
  8. TRAZODONE [Concomitant]
     Indication: SLEEP DISORDER
  9. PRAVASON HCL [Concomitant]
     Indication: SLEEP DISORDER

REACTIONS (14)
  - Heart rate increased [Unknown]
  - Mucosal dryness [Not Recovered/Not Resolved]
  - Nasal dryness [Not Recovered/Not Resolved]
  - Epistaxis [Not Recovered/Not Resolved]
  - Cough [Not Recovered/Not Resolved]
  - Dyspnoea [Unknown]
  - Dizziness [Unknown]
  - Dry mouth [Not Recovered/Not Resolved]
  - Feeling abnormal [Not Recovered/Not Resolved]
  - Headache [Unknown]
  - Insomnia [Not Recovered/Not Resolved]
  - Nightmare [Not Recovered/Not Resolved]
  - Rash [Recovered/Resolved]
  - Off label use [Not Recovered/Not Resolved]
